FAERS Safety Report 16560261 (Version 1)
Quarter: 2019Q3

REPORT INFORMATION
  Report Type: Spontaneous
  Country: CA (occurrence: CA)
  Receive Date: 20190711
  Receipt Date: 20190711
  Transmission Date: 20191004
  Serious: Yes (Other)
  Sender: FDA-Public Use
  Company Number: CA-PFIZER INC-2019295107

PATIENT
  Age: 59 Year
  Sex: Female
  Weight: 52 kg

DRUGS (3)
  1. VENLAFAXINE HCL [Suspect]
     Active Substance: VENLAFAXINE HYDROCHLORIDE
     Dosage: 30 MG, UNK
  2. VENLAFAXINE HCL [Suspect]
     Active Substance: VENLAFAXINE HYDROCHLORIDE
     Dosage: 20 MG, UNK
  3. VORTIOXETINE HYDROBROMIDE [Concomitant]
     Active Substance: VORTIOXETINE HYDROBROMIDE
     Dosage: UNK

REACTIONS (11)
  - Panic attack [Recovered/Resolved]
  - Seizure [Recovered/Resolved]
  - Anxiety [Recovered/Resolved]
  - Product formulation issue [Recovered/Resolved]
  - Depressive symptom [Recovered/Resolved]
  - Insomnia [Recovered/Resolved]
  - Tremor [Recovered/Resolved]
  - Influenza like illness [Recovered/Resolved]
  - Withdrawal syndrome [Recovered/Resolved]
  - Myalgia [Recovered/Resolved]
  - Product substitution issue [Recovered/Resolved]
